FAERS Safety Report 8662239 (Version 15)
Quarter: 2015Q3

REPORT INFORMATION
  Report Type: Spontaneous
  Country: US (occurrence: None)
  Receive Date: 20120627
  Receipt Date: 20150901
  Transmission Date: 20151125
  Serious: Yes (Hospitalization, Other)
  Sender: FDA-Public Use
  Company Number: DSU-2012-04864

PATIENT
  Age: 68 Year
  Sex: Female
  Weight: 63.7 kg

DRUGS (8)
  1. STEROID USE (UNSPECIFIED IMMUNOSUPPRESSANT AGENTS) [INGREDIENTS UNKNOWN] [Suspect]
     Active Substance: UNSPECIFIED INGREDIENT
     Indication: DIARRHOEA
     Dosage: UNKNOWN    EVERY
     Dates: start: 2012, end: 201210
  2. ELIDEL [Concomitant]
     Active Substance: PIMECROLIMUS
  3. BENICAR [Suspect]
     Active Substance: OLMESARTAN MEDOXOMIL
     Indication: HYPERTENSION
     Route: 048
     Dates: start: 20091130
  4. DEXLANSOPRAZOLE [Suspect]
     Active Substance: DEXLANSOPRAZOLE
     Indication: ABDOMINAL PAIN UPPER
     Dates: start: 20120325, end: 20120325
  5. CLOBETASOL PROPIONATE (CLOBETASOL PROPIONATE) [Concomitant]
  6. FLUTICASONE PROPIONATE (FLUTICASONE PROPIONATE) (FLUTICASONE PROPIONATE) [Concomitant]
     Active Substance: FLUTICASONE PROPIONATE
  7. ZITHROMAX [Concomitant]
     Active Substance: AZITHROMYCIN DIHYDRATE
  8. LIPITOR [Concomitant]
     Active Substance: ATORVASTATIN CALCIUM

REACTIONS (56)
  - Weight decreased [None]
  - Hepatitis [None]
  - Crohn^s disease [None]
  - Blood pressure increased [None]
  - Night sweats [None]
  - Dysstasia [None]
  - Basal cell carcinoma [None]
  - Seborrhoeic keratosis [None]
  - Depressed mood [None]
  - Faecal incontinence [None]
  - Fatigue [None]
  - Middle insomnia [None]
  - Alanine aminotransferase increased [None]
  - Aspartate aminotransferase increased [None]
  - Aortic arteriosclerosis [None]
  - Anxiety [None]
  - Gastric polyps [None]
  - Duodenitis haemorrhagic [None]
  - Hypophagia [None]
  - Abdominal lymphadenopathy [None]
  - Depression [None]
  - Diarrhoea [None]
  - Melanosis [None]
  - Carbohydrate intolerance [None]
  - Anal ulcer [None]
  - Intestinal mucosal atrophy [None]
  - Blood pressure decreased [None]
  - Duodenal ulcer [None]
  - Gastroenteritis [None]
  - Hepatic cyst [None]
  - Back pain [None]
  - Blood albumin decreased [None]
  - Dermatitis [None]
  - Large intestine polyp [None]
  - Gastric ulcer [None]
  - Urticaria [None]
  - Anal fissure [None]
  - Hepatic lesion [None]
  - Colon adenoma [None]
  - Alopecia [None]
  - Haemoglobin decreased [None]
  - Hiatus hernia [None]
  - Liver function test abnormal [None]
  - Steatorrhoea [None]
  - Sacroiliitis [None]
  - Palpitations [None]
  - Hypotension [None]
  - Colitis microscopic [None]
  - Sick relative [None]
  - Respiratory disorder [None]
  - Skin cancer [None]
  - Gastric ulcer haemorrhage [None]
  - Gastritis [None]
  - Cytomegalovirus test positive [None]
  - Malabsorption [None]
  - Actinic keratosis [None]

NARRATIVE: CASE EVENT DATE: 20110803
